FAERS Safety Report 17562695 (Version 1)
Quarter: 2020Q1

REPORT INFORMATION
  Report Type: Report from Study
  Country: GB (occurrence: GB)
  Receive Date: 20200319
  Receipt Date: 20200319
  Transmission Date: 20200409
  Serious: Yes (Other)
  Sender: FDA-Public Use
  Company Number: GB-ALEXION PHARMACEUTICALS INC.-A202003548

PATIENT
  Sex: Female

DRUGS (4)
  1. SOLIRIS [Suspect]
     Active Substance: ECULIZUMAB
     Dosage: 1200 MG, Q2W
     Route: 065
     Dates: start: 20140306, end: 20140417
  2. SOLIRIS [Suspect]
     Active Substance: ECULIZUMAB
     Dosage: 1500 MG, Q2W
     Route: 042
     Dates: start: 20140501
  3. SOLIRIS [Suspect]
     Active Substance: ECULIZUMAB
     Indication: PAROXYSMAL NOCTURNAL HAEMOGLOBINURIA
     Dosage: 600 MG, UNK
     Route: 065
     Dates: start: 20131114, end: 20131205
  4. SOLIRIS [Suspect]
     Active Substance: ECULIZUMAB
     Dosage: 900 MG, Q2W
     Route: 065
     Dates: start: 20131213, end: 20140220

REACTIONS (6)
  - Lower respiratory tract infection [Not Recovered/Not Resolved]
  - Back pain [Not Recovered/Not Resolved]
  - Poor venous access [Recovered/Resolved]
  - Fatigue [Not Recovered/Not Resolved]
  - Dyspnoea [Not Recovered/Not Resolved]
  - Abdominal pain [Not Recovered/Not Resolved]

NARRATIVE: CASE EVENT DATE: 20200226
